FAERS Safety Report 6982286-2 (Version None)
Quarter: 2010Q3

REPORT INFORMATION
  Report Type: 
  Country: None (occurrence: None)
  Receive Date: 20100914
  Receipt Date: 20091208
  Transmission Date: 20110219
  Serious: No
  Sender: FDA-Public Use
  Company Number: US-PFIZER INC-2009308422

PATIENT
  Sex: Female
  Weight: 99.8 kg

DRUGS (3)
  1. LYRICA [Suspect]
     Indication: PAIN IN EXTREMITY
     Dosage: 75 MG, 2X/DAY
     Dates: start: 20091120
  2. CELEXA [Concomitant]
     Dosage: 20 MG, UNK
  3. TRAZODONE HYDROCHLORIDE [Concomitant]
     Dosage: 150 MG, UNK

REACTIONS (1)
  - MUSCLE CONTRACTIONS INVOLUNTARY [None]
